FAERS Safety Report 12306889 (Version 2)
Quarter: 2016Q2

REPORT INFORMATION
  Report Type: Spontaneous
  Country: US (occurrence: US)
  Receive Date: 20160426
  Receipt Date: 20160617
  Transmission Date: 20160815
  Serious: Yes (Hospitalization, Other)
  Sender: FDA-Public Use
  Company Number: US-IMPAX LABORATORIES, INC-2016-IPXL-00405

PATIENT
  Sex: Female
  Weight: 67 kg

DRUGS (22)
  1. MAGNESIUM [Concomitant]
     Active Substance: MAGNESIUM
     Indication: PRODUCT USED FOR UNKNOWN INDICATION
     Dosage: 500 MG, 1 /DAY
     Route: 065
  2. RASAGILINE [Concomitant]
     Active Substance: RASAGILINE
     Indication: PARKINSON^S DISEASE
     Dosage: 1 MG, DAILY
     Route: 065
     Dates: start: 2012
  3. CLONAZEPAM. [Concomitant]
     Active Substance: CLONAZEPAM
     Dosage: 0.75 MG 1 TABLET, BEDTIME
     Route: 065
  4. ENTACAPONE. [Concomitant]
     Active Substance: ENTACAPONE
     Indication: PRODUCT USED FOR UNKNOWN INDICATION
     Dosage: UNK
     Route: 065
     Dates: start: 20140806
  5. VITAMIN D3 [Concomitant]
     Active Substance: CHOLECALCIFEROL
     Indication: PRODUCT USED FOR UNKNOWN INDICATION
     Dosage: 1000 IU, 2 /DAY
     Route: 065
  6. RYTARY [Suspect]
     Active Substance: CARBIDOPA\LEVODOPA
     Indication: PARKINSON^S DISEASE
     Dosage: (3 CAPSULES AT 7 AM, 2 CAPSULES AT 12 PM, 2 CAPSULES AT  5 PM AND 2 CAPSULES AT 10 PM),  4 /DAY
     Route: 048
     Dates: start: 201501, end: 2015
  7. CARBIDOPA LEVODOPA [Concomitant]
     Active Substance: CARBIDOPA\LEVODOPA
     Dosage: (50/200), BEDTIME
     Route: 065
     Dates: start: 2012
  8. RYTARY [Suspect]
     Active Substance: CARBIDOPA\LEVODOPA
     Dosage: (290), QID
     Route: 065
     Dates: start: 2015, end: 2015
  9. CARBIDOPA LEVODOPA [Concomitant]
     Active Substance: CARBIDOPA\LEVODOPA
     Dosage: (36.25/145 MG, 3 CAPSULES AT 7 AM, 2 CAPSULES AT 12 PM, 5 PM  AND AT 10 PM)
     Route: 065
  10. CLONAZEPAM. [Concomitant]
     Active Substance: CLONAZEPAM
     Indication: ABNORMAL BEHAVIOUR
     Dosage: 0.5 MG 1 TABLET, BEDTIME
     Route: 065
  11. GABAPENTIN. [Concomitant]
     Active Substance: GABAPENTIN
     Indication: SLEEP DISORDER
  12. RYTARY [Suspect]
     Active Substance: CARBIDOPA\LEVODOPA
     Dosage: (2 CAPSULES AT 7 AM, 2 CAPSULES AT 12 PM, 2 CAPSULES AT  5 PM AND 2 CAPSULES AT 10 PM),  4 /DAY
     Route: 048
     Dates: start: 2015, end: 2016
  13. VITAMIN D3 [Concomitant]
     Active Substance: CHOLECALCIFEROL
     Dosage: 5000 IU, DAILY
     Route: 065
  14. AMANTADINE [Concomitant]
     Active Substance: AMANTADINE
     Indication: DYSKINESIA
     Dosage: 100 MG (1 CAPSULE), MORNING
     Route: 048
     Dates: start: 201508
  15. AMLODIPINE BESYLATE. [Concomitant]
     Active Substance: AMLODIPINE BESYLATE
     Indication: BLOOD PRESSURE MEASUREMENT
     Dosage: 5 MG, 1 TABLET DAILY
     Route: 065
  16. VITAMIN B12 [Concomitant]
     Active Substance: CYANOCOBALAMIN
     Indication: PRODUCT USED FOR UNKNOWN INDICATION
     Dosage: 1000 ?G 1 TABLET, DAILY
     Route: 065
  17. ACYCLOVIR. [Concomitant]
     Active Substance: ACYCLOVIR
     Indication: PROPHYLAXIS
     Dosage: 400 MG, PRN
     Route: 065
  18. GABAPENTIN. [Concomitant]
     Active Substance: GABAPENTIN
     Indication: PAIN
     Dosage: (1 CAPSLUE), BEDTIME
     Route: 048
     Dates: start: 20130402
  19. RYTARY [Suspect]
     Active Substance: CARBIDOPA\LEVODOPA
     Dosage: (2 CAPSULES AT 7 AM, 3 CAPSULES AT 12 PM, 2 CAPSULES AT  5 PM AND 2 CAPSULES AT 10 PM),  4 /DAY
     Route: 048
     Dates: start: 2016
  20. CARBIDOPA LEVODOPA [Concomitant]
     Active Substance: CARBIDOPA\LEVODOPA
     Indication: PRODUCT USED FOR UNKNOWN INDICATION
     Dosage: (100), 5 /DAY
     Route: 065
     Dates: start: 2012
  21. AZILECT [Concomitant]
     Active Substance: RASAGILINE MESYLATE
     Indication: PARKINSON^S DISEASE
     Dosage: 1 MG, BEDTIME
     Route: 065
  22. AMANTADINE [Concomitant]
     Active Substance: AMANTADINE
     Dosage: 100 MG (1 CAPSULE), AFTERNOON
     Route: 048

REACTIONS (19)
  - Urinary incontinence [Unknown]
  - Parkinson^s disease [Unknown]
  - Indifference [Unknown]
  - Foot deformity [Unknown]
  - Drug effect decreased [Unknown]
  - Insomnia [Unknown]
  - Blepharospasm [Unknown]
  - Hypoaesthesia [Unknown]
  - Blood pressure increased [Unknown]
  - Dysphagia [Unknown]
  - Headache [Unknown]
  - Arthritis [Unknown]
  - Dysarthria [Unknown]
  - Freezing phenomenon [Unknown]
  - Dry mouth [Unknown]
  - On and off phenomenon [Recovering/Resolving]
  - Paraesthesia [Unknown]
  - Dystonia [Unknown]
  - Musculoskeletal stiffness [Unknown]

NARRATIVE: CASE EVENT DATE: 2015
